FAERS Safety Report 6247866-0 (Version None)
Quarter: 2009Q2

REPORT INFORMATION
  Report Type: 
  Country: None (occurrence: None)
  Receive Date: 20090626
  Receipt Date: 20090622
  Transmission Date: 20091009
  Serious: Yes (Hospitalization)
  Sender: FDA-Public Use
  Company Number: FR-ASTRAZENECA-2009CG01021

PATIENT
  Age: 27 Year
  Sex: Female

DRUGS (3)
  1. ENTOCORT EC [Suspect]
     Indication: CROHN'S DISEASE
     Route: 048
     Dates: start: 20090506, end: 20090515
  2. ENTOCORT EC [Suspect]
     Route: 048
     Dates: start: 20090601
  3. PENTASA [Suspect]
     Indication: CROHN'S DISEASE
     Route: 048
     Dates: start: 20090506, end: 20090515

REACTIONS (4)
  - C-REACTIVE PROTEIN INCREASED [None]
  - LIPASE INCREASED [None]
  - MYALGIA [None]
  - TRANSAMINASES INCREASED [None]
